FAERS Safety Report 8460958-0 (Version None)
Quarter: 2012Q2

REPORT INFORMATION
  Report Type: 
  Country: None (occurrence: None)
  Receive Date: 20120625
  Receipt Date: 20120614
  Transmission Date: 20120825
  Serious: No
  Sender: FDA-Public Use
  Company Number: US-BIOGENIDEC-2012BI017003

PATIENT
  Age: 69 Year
  Sex: Female

DRUGS (2)
  1. TYSABRI [Suspect]
     Indication: MULTIPLE SCLEROSIS
     Route: 042
     Dates: start: 20090501, end: 20100609
  2. TYSABRI [Suspect]
     Route: 042
     Dates: start: 20110404

REACTIONS (3)
  - DERMATITIS CONTACT [None]
  - INFUSION SITE HAEMATOMA [None]
  - POOR VENOUS ACCESS [None]
